FAERS Safety Report 10235857 (Version 3)
Quarter: 2015Q2

REPORT INFORMATION
  Report Type: Report from Study
  Country: JP (occurrence: None)
  Receive Date: 20140611
  Receipt Date: 20150501
  Transmission Date: 20150821
  Serious: Yes (Hospitalization)
  Sender: FDA-Public Use
  Company Number: 2014JP004184

PATIENT
  Age: 78 Year
  Sex: Male
  Weight: 60 kg

DRUGS (1)
  1. REGNITE (GABAPENTIN ENACARBIL) TABLET, 300MG [Suspect]
     Active Substance: GABAPENTIN ENACARBIL
     Indication: RESTLESS LEGS SYNDROME
     Dosage: 600 MG, ONCE DAILY, ORAL
     Route: 048
     Dates: start: 20130729, end: 20140305

REACTIONS (4)
  - Condition aggravated [None]
  - Dementia with Lewy bodies [None]
  - Hallucination [None]
  - Feeling abnormal [None]

NARRATIVE: CASE EVENT DATE: 20140214
